FAERS Safety Report 5669950-2 (Version None)
Quarter: 2008Q1

REPORT INFORMATION
  Report Type: 
  Country: None (occurrence: None)
  Receive Date: 20080317
  Receipt Date: 20080307
  Transmission Date: 20080703
  Serious: Yes (Other)
  Sender: FDA-Public Use
  Company Number: US-ABBOTT-07P-163-0364992-00

PATIENT

DRUGS (1)
  1. PANHEMATIN [Suspect]
     Indication: DRUG USE FOR UNKNOWN INDICATION
     Route: 042
     Dates: start: 20070305, end: 20080221

REACTIONS (2)
  - IRON OVERLOAD [None]
  - SERUM FERRITIN INCREASED [None]
